FAERS Safety Report 9283776 (Version 5)
Quarter: 2013Q3

REPORT INFORMATION
  Report Type: Spontaneous
  Country: FR (occurrence: FR)
  Receive Date: 20130510
  Receipt Date: 20130823
  Transmission Date: 20140515
  Serious: Yes (Hospitalization, Other)
  Sender: FDA-Public Use
  Company Number: FR-AMGEN-FRASP2013031973

PATIENT
  Age: 84 Year
  Sex: Male

DRUGS (18)
  1. ARANESP [Suspect]
     Indication: ANAEMIA
     Dosage: 20 MUG, UNK
     Route: 065
     Dates: start: 20130121, end: 20130427
  2. CLAMOXYL (AMOXICILLIN) [Concomitant]
     Indication: PRURITUS
  3. FRAXIPARIN                         /00889603/ [Concomitant]
     Dosage: 3800 IU, UNK
     Route: 058
     Dates: start: 20130329
  4. LASILIX                            /00032601/ [Concomitant]
     Dosage: 40 MG, 2 TABLETS AT NOON
     Dates: start: 20130411
  5. UVEDOSE [Concomitant]
     Dosage: 100000 IU, QMO
     Route: 048
     Dates: start: 20120406
  6. OROCAL                             /00944201/ [Concomitant]
     Dosage: 500 MG, BID
     Dates: start: 20130406
  7. PLAVIX [Concomitant]
     Dosage: 75 MG, UNK
     Dates: start: 20130329
  8. LOXEN [Concomitant]
     Dosage: 50 MG, BID
     Dates: start: 20130329
  9. INEXIUM                            /01479302/ [Concomitant]
     Dosage: 40 MG, UNK
     Dates: start: 20130329
  10. CHIBRO-PROSCAR [Concomitant]
     Dosage: 5 MG, UNK
     Dates: start: 20130329
  11. CETIRIZINE ARROW [Concomitant]
     Dosage: 10 MG, BID
     Dates: start: 20130329
  12. BISOPROLOL EG [Concomitant]
     Dosage: 10 MG, UNK
     Dates: start: 20130329
  13. ATARAX                             /00058401/ [Concomitant]
     Dosage: 25 MG, UNK
     Dates: start: 20130329
  14. VENOFER [Concomitant]
  15. AERIUS                             /01009701/ [Concomitant]
  16. FUROSEMIDE [Concomitant]
     Dosage: 40 UNK, UNK
  17. HAVLANE [Concomitant]
  18. INEGY [Concomitant]

REACTIONS (5)
  - Eosinophilia [Recovered/Resolved]
  - Waldenstrom^s macroglobulinaemia [Unknown]
  - Pruritus [Recovered/Resolved]
  - Hypersensitivity [Unknown]
  - Renal failure chronic [Unknown]
